FAERS Safety Report 7586672-1 (Version None)
Quarter: 2011Q3

REPORT INFORMATION
  Report Type: 
  Country: None (occurrence: None)
  Receive Date: 20110701
  Receipt Date: 20110627
  Transmission Date: 20111222
  Serious: Yes (Other)
  Sender: FDA-Public Use
  Company Number: US-ELI_LILLY_AND_COMPANY-US200910005434

PATIENT
  Sex: Female
  Weight: 136.5 kg

DRUGS (7)
  1. TYLENOL (CAPLET) [Concomitant]
     Indication: PAIN
     Dosage: UNK, AS NEEDED
  2. BYETTA [Suspect]
     Dosage: 10 UG, BID
     Dates: end: 20080820
  3. METFORMIN HCL [Concomitant]
  4. INSULIN [Concomitant]
  5. LIPITOR [Concomitant]
  6. BYETTA [Suspect]
     Dosage: UNK, UNKNOWN
     Route: 065
     Dates: start: 20070701
  7. PIOGLITAZONE [Concomitant]

REACTIONS (6)
  - PANCREATITIS [None]
  - ABDOMINAL PAIN [None]
  - VOMITING [None]
  - DIARRHOEA [None]
  - NAUSEA [None]
  - OFF LABEL USE [None]
